FAERS Safety Report 4493627-2 (Version None)
Quarter: 2004Q4

REPORT INFORMATION
  Report Type: 
  Country: None (occurrence: None)
  Receive Date: 20041102
  Receipt Date: 20041025
  Transmission Date: 20050328
  Serious: Yes (Hospitalization)
  Sender: FDA-Public Use
  Company Number: 209915

PATIENT
  Age: 45 Year
  Sex: Male
  Weight: 92.1 kg

DRUGS (4)
  1. XOLAIR [Suspect]
     Indication: ASTHMA
     Dosage: 300 MGQ2W SUBCUTANEOUS
     Route: 058
     Dates: start: 20040218, end: 20040714
  2. ADVAIR (SALMETEROL XINAFOATE, FLUTICASONE PROPIONATE) [Concomitant]
  3. SINGULAIR (MONTELEUKAST SODIUM) [Concomitant]
  4. FLONASE NASAL SPRAY (FLUTICASONE PROPIONATE) [Concomitant]

REACTIONS (5)
  - DYSPNOEA [None]
  - HYPOXIA [None]
  - IMPAIRED WORK ABILITY [None]
  - LUNG INFILTRATION [None]
  - POLYMYOSITIS [None]
